FAERS Safety Report 5170407-6 (Version None)
Quarter: 2006Q4

REPORT INFORMATION
  Report Type: 
  Country: None (occurrence: None)
  Receive Date: 20061204
  Receipt Date: 20061122
  Transmission Date: 20070319
  Serious: Yes (Hospitalization)
  Sender: FDA-Public Use
  Company Number: S06-UKI-05036-01

PATIENT
  Age: 48 Year
  Sex: Female

DRUGS (4)
  1. CITALOPRAM HYDROBROMIDE [Suspect]
  2. ARIPIPRAZOLE [Suspect]
     Indication: PSYCHOTIC DISORDER
     Dosage: 15 MG QD
  3. LEVODOPA BENSARAZIDE HYDROCHLO [Concomitant]
  4. QUETIAPINE FUMARATE [Concomitant]

REACTIONS (5)
  - AKATHISIA [None]
  - AKINESIA [None]
  - DYSARTHRIA [None]
  - DYSPHAGIA [None]
  - MUSCLE RIGIDITY [None]
